FAERS Safety Report 4578804-4 (Version None)
Quarter: 2005Q1

REPORT INFORMATION
  Report Type: 
  Country: None (occurrence: None)
  Receive Date: 20050209
  Receipt Date: 20050209
  Transmission Date: 20050727
  Serious: No
  Sender: FDA-Public Use
  Company Number: None

PATIENT
  Age: 54 Year
  Sex: Female

DRUGS (3)
  1. NEURONTIN [Suspect]
     Indication: INJURY
     Dosage: 600 MG 1 PO TID
     Route: 048
  2. NEURONTIN [Suspect]
     Indication: NEURALGIA
     Dosage: 600 MG 1 PO TID
     Route: 048
  3. NEURONTIN [Suspect]
     Indication: SURGERY
     Dosage: 600 MG 1 PO TID
     Route: 048

REACTIONS (2)
  - DRUG INEFFECTIVE [None]
  - PHARMACEUTICAL PRODUCT COMPLAINT [None]
